FAERS Safety Report 4475296-0 (Version None)
Quarter: 2004Q4

REPORT INFORMATION
  Report Type: 
  Country: None (occurrence: None)
  Receive Date: 20041013
  Receipt Date: 20041013
  Transmission Date: 20050328
  Serious: Yes (Hospitalization)
  Sender: FDA-Public Use
  Company Number: None

PATIENT
  Age: 59 Year
  Sex: Female
  Weight: 92.2 kg

DRUGS (5)
  1. CELECOXIB [Suspect]
     Indication: ARTHRITIS
     Dosage: 200 MG PO DAILY [POST 7-8 MONTHS]
     Route: 048
  2. NORVASC [Concomitant]
  3. PROPRANOLOL [Concomitant]
  4. AVAPRO [Concomitant]
  5. ZOLOFT [Concomitant]

REACTIONS (7)
  - BLOOD PRESSURE ORTHOSTATIC ABNORMAL [None]
  - CHEST DISCOMFORT [None]
  - HAEMATOCRIT ABNORMAL [None]
  - HAEMOGLOBIN ABNORMAL [None]
  - LOSS OF CONSCIOUSNESS [None]
  - SYNCOPE [None]
  - UPPER GASTROINTESTINAL HAEMORRHAGE [None]
